FAERS Safety Report 23544039 (Version 9)
Quarter: 2025Q3

REPORT INFORMATION
  Report Type: Spontaneous
  Country: JP (occurrence: JP)
  Receive Date: 20240220
  Receipt Date: 20250803
  Transmission Date: 20251020
  Serious: Yes (Death, Hospitalization, Other)
  Sender: ALEXION PHARMACEUTICALS
  Company Number: JP-ALXN-202402JPN000391JP

PATIENT
  Age: 0 Year
  Sex: Male
  Weight: 0.452 kg

DRUGS (2)
  1. SOLIRIS [Suspect]
     Active Substance: ECULIZUMAB
     Dosage: 600 MILLIGRAM, QW
  2. SOLIRIS [Suspect]
     Active Substance: ECULIZUMAB
     Dosage: 900 MILLIGRAM, Q2W

REACTIONS (6)
  - Death [Fatal]
  - Exposure via breast milk [Fatal]
  - Foetal exposure during pregnancy [Fatal]
  - Neonatal respiratory distress syndrome [Recovering/Resolving]
  - Premature baby [Unknown]
  - Foetal growth restriction [Unknown]

NARRATIVE: CASE EVENT DATE: 20231115
